FAERS Safety Report 7588209-X (Version None)
Quarter: 2011Q3

REPORT INFORMATION
  Report Type: 
  Country: None (occurrence: None)
  Receive Date: 20110705
  Receipt Date: 20110613
  Transmission Date: 20111222
  Serious: Yes (Hospitalization, Disabling, Other)
  Sender: FDA-Public Use
  Company Number: US-BAYER-201041885NA

PATIENT
  Age: 18 Year
  Sex: Female
  Weight: 49.887 kg

DRUGS (4)
  1. MOTRIN [Concomitant]
  2. ADVIL LIQUI-GELS [Concomitant]
  3. PROTONIX [Concomitant]
  4. YAZ [Suspect]
     Indication: ACNE
     Dosage: UNK UNK, UNK
     Route: 048
     Dates: start: 20070629, end: 20080814

REACTIONS (2)
  - GALLBLADDER DISORDER [None]
  - CHOLECYSTITIS ACUTE [None]
